FAERS Safety Report 10390589 (Version 2)
Quarter: 2014Q4

REPORT INFORMATION
  Report Type: Spontaneous
  Country: FR (occurrence: None)
  Receive Date: 20140814
  Receipt Date: 20141121
  Transmission Date: 20150528
  Serious: Yes (Other)
  Sender: FDA-Public Use
  Company Number: 2476881

PATIENT
  Age: 67 Year
  Sex: Male

DRUGS (5)
  1. EMEND [Concomitant]
     Active Substance: APREPITANT
  2. GEMZAR [Concomitant]
     Active Substance: GEMCITABINE HYDROCHLORIDE
  3. SOLU-MEDROL [Concomitant]
     Active Substance: METHYLPREDNISOLONE SODIUM SUCCINATE
  4. KYTRIL [Concomitant]
     Active Substance: GRANISETRON HYDROCHLORIDE
  5. CARBOPLATIN. [Suspect]
     Active Substance: CARBOPLATIN
     Indication: NEOPLASM MALIGNANT
     Dosage: UNKNOWN, UNKNOWN, INTRAVENOUS ( NOT OTHERWISE SPECIFIED)
     Route: 042
     Dates: start: 20140506, end: 20140527

REACTIONS (7)
  - Rash erythematous [None]
  - Toxic skin eruption [None]
  - Neutropenia [None]
  - Oedema peripheral [None]
  - Pyrexia [None]
  - Nephropathy toxic [None]
  - Thrombocytopenia [None]

NARRATIVE: CASE EVENT DATE: 20140508
